FAERS Safety Report 15141309 (Version 1)
Quarter: 2018Q3

REPORT INFORMATION
  Report Type: Report from Study
  Country: GB (occurrence: GB)
  Receive Date: 20180713
  Receipt Date: 20180713
  Transmission Date: 20181010
  Serious: Yes (Hospitalization)
  Sender: FDA-Public Use
  Company Number: GB-ROCHE-2154143

PATIENT
  Age: 70 Year
  Sex: Male

DRUGS (14)
  1. VENETOCLAX. [Suspect]
     Active Substance: VENETOCLAX
     Dosage: CYCLE 1BIS
     Route: 048
     Dates: start: 20171114, end: 20171120
  2. OBINUTUZUMAB. [Suspect]
     Active Substance: OBINUTUZUMAB
     Dosage: CYCLE 4 DAY 1
     Route: 042
     Dates: start: 20180119, end: 20180119
  3. OBINUTUZUMAB. [Suspect]
     Active Substance: OBINUTUZUMAB
     Dosage: CYCLE 1 DAY 1
     Route: 042
     Dates: start: 20171020, end: 20171020
  4. VENETOCLAX. [Suspect]
     Active Substance: VENETOCLAX
     Dosage: CYCLE 1BIS
     Route: 048
     Dates: start: 20171201, end: 20171218
  5. IBRUTINIB [Suspect]
     Active Substance: IBRUTINIB
     Indication: MANTLE CELL LYMPHOMA
     Dosage: FROM CYCLE 1
     Route: 048
     Dates: start: 20170922, end: 20180215
  6. VENETOCLAX. [Suspect]
     Active Substance: VENETOCLAX
     Dosage: CYCLE 1BIS
     Route: 048
     Dates: start: 20180119, end: 20180215
  7. VENETOCLAX. [Suspect]
     Active Substance: VENETOCLAX
     Dosage: CYCLE 1BIS
     Route: 048
     Dates: start: 20171121, end: 20171127
  8. VENETOCLAX. [Suspect]
     Active Substance: VENETOCLAX
     Dosage: CYCLE 1BIS
     Route: 048
     Dates: start: 20171103, end: 20171109
  9. VENETOCLAX. [Suspect]
     Active Substance: VENETOCLAX
     Dosage: CYCLE 1BIS
     Route: 048
     Dates: start: 20171222, end: 20180104
  10. VENETOCLAX. [Suspect]
     Active Substance: VENETOCLAX
     Dosage: CYCLE 1BIS AND 2
     Route: 048
     Dates: start: 20171020, end: 20171127
  11. OBINUTUZUMAB. [Suspect]
     Active Substance: OBINUTUZUMAB
     Indication: MANTLE CELL LYMPHOMA
     Dosage: CYCLE 1 (D1+2, D5 AND D8)
     Route: 042
     Dates: start: 20170921, end: 20171005
  12. OBINUTUZUMAB. [Suspect]
     Active Substance: OBINUTUZUMAB
     Dosage: CYCLE 2 DAY 1
     Route: 042
     Dates: start: 20171121, end: 20171121
  13. OBINUTUZUMAB. [Suspect]
     Active Substance: OBINUTUZUMAB
     Dosage: CYCLE 3
     Route: 042
     Dates: start: 20171222, end: 20171222
  14. VENETOCLAX. [Suspect]
     Active Substance: VENETOCLAX
     Indication: MANTLE CELL LYMPHOMA
     Dosage: CYCLE 1BIS
     Route: 048
     Dates: start: 20171027, end: 20171102

REACTIONS (1)
  - Urinary tract infection [Recovered/Resolved]

NARRATIVE: CASE EVENT DATE: 20180302
